FAERS Safety Report 24642652 (Version 3)
Quarter: 2024Q4

REPORT INFORMATION
  Report Type: Spontaneous
  Country: FI (occurrence: FI)
  Receive Date: 20241120
  Receipt Date: 20241127
  Transmission Date: 20250115
  Serious: Yes (Life-Threatening, Hospitalization, Other)
  Sender: MERCK
  Company Number: FI-009507513-2411FIN006582

PATIENT
  Age: 46 Year
  Sex: Female

DRUGS (1)
  1. KEYTRUDA [Suspect]
     Active Substance: PEMBROLIZUMAB
     Indication: Lung neoplasm malignant
     Dosage: MAINTENANCE TREATMENT FOR ABOUT ONE YEAR

REACTIONS (7)
  - Pneumonitis [Unknown]
  - Inflammation [Unknown]
  - Hypoxia [Unknown]
  - Respiratory fatigue [Unknown]
  - Facial paralysis [Unknown]
  - Dysarthria [Unknown]
  - Fatigue [Unknown]
